FAERS Safety Report 4523258-7 (Version None)
Quarter: 2004Q4

REPORT INFORMATION
  Report Type: 
  Country: None (occurrence: None)
  Receive Date: 20041209
  Receipt Date: 20041209
  Transmission Date: 20050328
  Serious: Yes (Life-Threatening)
  Sender: FDA-Public Use
  Company Number: None

PATIENT
  Age: 82 Year
  Sex: Female
  Weight: 71.6683 kg

DRUGS (4)
  1. AMIODARONE [Suspect]
     Indication: ARRHYTHMIA
     Dosage: AMIODARONE ORAL 200 MG DAILY 047
     Route: 048
     Dates: start: 20010801, end: 20040701
  2. NORPACE [Concomitant]
  3. ATIVAN [Concomitant]
  4. PREMARIN [Concomitant]

REACTIONS (4)
  - CHEST PAIN [None]
  - DYSPNOEA [None]
  - PNEUMONIA [None]
  - PULMONARY FIBROSIS [None]
